FAERS Safety Report 11112010 (Version 1)
Quarter: 2015Q2

REPORT INFORMATION
  Report Type: Spontaneous
  Country: US (occurrence: None)
  Receive Date: 20150512
  Receipt Date: 20150512
  Transmission Date: 20150821
  Serious: Yes (Hospitalization)
  Sender: FDA-Public Use
  Company Number: US-H14001-15-00694

PATIENT
  Age: 2 Year
  Sex: Female

DRUGS (2)
  1. DONEPEZIL (DONEPEZIL) UNKNOWN [Suspect]
     Active Substance: DONEPEZIL
     Indication: PRODUCT USED FOR UNKNOWN INDICATION
  2. MEMANTINE (MEMANTINE) [Suspect]
     Active Substance: MEMANTINE
     Indication: PRODUCT USED FOR UNKNOWN INDICATION

REACTIONS (3)
  - Hallucination, visual [None]
  - Agitation [None]
  - Accidental exposure to product by child [None]
